FAERS Safety Report 5825299-6 (Version None)
Quarter: 2008Q3

REPORT INFORMATION
  Report Type: 
  Country: None (occurrence: None)
  Receive Date: 20080722
  Receipt Date: 20080711
  Transmission Date: 20090109
  Serious: Yes (Other)
  Sender: FDA-Public Use
  Company Number: 2008070014

PATIENT
  Age: 47 Year
  Sex: Female

DRUGS (8)
  1. SOMA [Suspect]
     Dosage: 4 IN 1 D
  2. XANAX [Suspect]
     Dosage: 6 MG (2 MG, 3 IN 1 D)
  3. OXYCONTIN [Suspect]
     Dosage: 100 MG (50 MG, 2 IN 1 D)
  4. ROXICODONE [Suspect]
     Dosage: 120 MG (30 MG, 4 IN 1 D)
  5. WELLBUTRIN [Suspect]
     Dosage: 3 IN 1 D
  6. ADDERALL 10 [Suspect]
     Dosage: 3 IN 1 D
  7. ASPIRIN [Suspect]
  8. YASMIN [Suspect]

REACTIONS (2)
  - PYREXIA [None]
  - SUICIDAL IDEATION [None]
